FAERS Safety Report 21913918 (Version 1)
Quarter: 2023Q1

REPORT INFORMATION
  Report Type: Spontaneous
  Country: US (occurrence: US)
  Receive Date: 20230125
  Receipt Date: 20230125
  Transmission Date: 20230417
  Serious: No
  Sender: FDA-Public Use
  Company Number: US-ALLERGAN-2222576US

PATIENT
  Sex: Female

DRUGS (23)
  1. BOTOX [Suspect]
     Active Substance: ONABOTULINUMTOXINA
     Indication: Migraine
     Dosage: 155 UNITS, SINGLE
     Dates: start: 20220119, end: 20220119
  2. BOTOX [Suspect]
     Active Substance: ONABOTULINUMTOXINA
     Indication: Jaw clicking
     Dosage: 155 UNITS, SINGLE
     Dates: start: 20210715, end: 20210715
  3. AJOVY [Concomitant]
     Active Substance: FREMANEZUMAB-VFRM
     Dosage: 1.5 ML UNDER THE SKIN EVERY 30 DAYS
     Route: 058
  4. SYMBICORT [Concomitant]
     Active Substance: BUDESONIDE\FORMOTEROL FUMARATE DIHYDRATE
     Dosage: 2 PUFFS USING NEBULIZER
  5. WELLBUTRIN XL [Concomitant]
     Active Substance: BUPROPION HYDROCHLORIDE
     Dosage: 300 MG TABLET + 150 MG TABLET DAILY
     Route: 048
  6. VITAMIN D3 [Concomitant]
     Active Substance: CHOLECALCIFEROL
     Dosage: 5000 UNITS, QD
     Route: 048
  7. COENZYME Q10 [Concomitant]
     Active Substance: DIETARY SUPPLEMENT\UBIDECARENONE
     Dosage: 200 MG, QD
     Route: 048
  8. DESVENLAFAXINE SUCCINATE [Concomitant]
     Active Substance: DESVENLAFAXINE SUCCINATE
     Dosage: 50 MG, QD
     Route: 048
  9. ELETRIPTAN HYDROBROMIDE [Concomitant]
     Active Substance: ELETRIPTAN HYDROBROMIDE
     Indication: Migraine
     Dosage: MAX 80MG DOSES/24 HOURS
  10. FAMOTIDINE [Concomitant]
     Active Substance: FAMOTIDINE
     Dosage: 10 MG, Q12H
     Route: 048
  11. FML FORTE [Concomitant]
     Active Substance: FLUOROMETHOLONE
     Dosage: 2 GTT, BID
  12. FOLIC ACID [Concomitant]
     Active Substance: FOLIC ACID
     Dosage: 1 MG, QD
     Route: 048
  13. HYDROCORTISONE [Concomitant]
     Active Substance: HYDROCORTISONE
     Dosage: 1 APPLICATION TO AFFECTED AREA
  14. HYDROXYCHLOROQUINE [Concomitant]
     Active Substance: HYDROXYCHLOROQUINE
     Dosage: 200 MG, BID
     Route: 048
  15. IBUPROFEN [Concomitant]
     Active Substance: IBUPROFEN
     Indication: Pain
     Dosage: 400 MG EVERY 6 HOURS AS NEEDED
     Route: 048
  16. LEVALBUTEROL [Concomitant]
     Active Substance: LEVALBUTEROL
     Dosage: 2 PUFFS DAILY AS NEEDED
  17. UBRELVY [Concomitant]
     Active Substance: UBROGEPANT
  18. PLAQUENIL [Concomitant]
     Active Substance: HYDROXYCHLOROQUINE SULFATE
     Indication: Systemic lupus erythematosus
  19. METHOTREXATE [Concomitant]
     Active Substance: METHOTREXATE
     Indication: Systemic lupus erythematosus
  20. VYVANSE [Concomitant]
     Active Substance: LISDEXAMFETAMINE DIMESYLATE
  21. WELLBUTRIN [Concomitant]
     Active Substance: BUPROPION HYDROCHLORIDE
  22. DESVENLAFAXINE [Concomitant]
     Active Substance: DESVENLAFAXINE
  23. KETAMINE [Concomitant]
     Active Substance: KETAMINE
     Route: 045

REACTIONS (4)
  - Off label use [Unknown]
  - Hypoaesthesia [Unknown]
  - Drug ineffective [Unknown]
  - Paraesthesia [Unknown]
